FAERS Safety Report 8117085-1 (Version None)
Quarter: 2012Q1

REPORT INFORMATION
  Report Type: 
  Country: None (occurrence: None)
  Receive Date: 20120206
  Receipt Date: 20120129
  Transmission Date: 20120608
  Serious: Yes (Other)
  Sender: FDA-Public Use
  Company Number: US-ABBOTT-12P-163-0900335-00

PATIENT
  Sex: Female

DRUGS (5)
  1. HUMIRA [Suspect]
     Indication: PSORIASIS
     Dates: start: 20080101, end: 20090101
  2. HUMIRA [Suspect]
     Dates: start: 20100101, end: 20110101
  3. MULTI-VITAMINS [Concomitant]
     Indication: VITAMIN SUPPLEMENTATION
  4. HUMIRA [Suspect]
     Dosage: TOOK 1 INJECTION
     Dates: start: 20111001, end: 20111001
  5. HUMIRA [Suspect]
     Dosage: TOOK 1 INJECTION
     Dates: start: 20110801, end: 20110801

REACTIONS (2)
  - PRE-ECLAMPSIA [None]
  - PLACENTA PRAEVIA [None]
